FAERS Safety Report 25527366 (Version 1)
Quarter: 2025Q3

REPORT INFORMATION
  Report Type: Spontaneous
  Country: GB (occurrence: GB)
  Receive Date: 20250708
  Receipt Date: 20250708
  Transmission Date: 20251020
  Serious: Yes (Other)
  Sender: TOLMAR
  Company Number: GB-TOLMAR-TLM-944-00

PATIENT
  Age: 52 Year
  Sex: Male

DRUGS (7)
  1. TESTOSTERONE [Suspect]
     Active Substance: TESTOSTERONE
     Indication: HIV infection
     Route: 065
  2. CABOTEGRAVIR [Suspect]
     Active Substance: CABOTEGRAVIR
     Indication: HIV infection
     Route: 030
  3. RILPIVIRINE [Suspect]
     Active Substance: RILPIVIRINE
     Indication: HIV infection
     Route: 030
  4. EMTRICITABINE [Concomitant]
     Active Substance: EMTRICITABINE
  5. TENOFOVIR DISOPROXIL FUMARATE TEVA [Concomitant]
     Indication: HIV infection
  6. ELVITEGRAVIR [Concomitant]
     Active Substance: ELVITEGRAVIR
  7. COBICISTAT [Concomitant]
     Active Substance: COBICISTAT

REACTIONS (4)
  - Injection site necrosis [Unknown]
  - Ecchymosis [Unknown]
  - Injection site mass [Unknown]
  - Off label use [Unknown]
